FAERS Safety Report 25967244 (Version 1)
Quarter: 2025Q4

REPORT INFORMATION
  Report Type: Spontaneous
  Country: EU (occurrence: EU)
  Receive Date: 20251028
  Receipt Date: 20251028
  Transmission Date: 20260118
  Serious: Yes (Other)
  Sender: ACCORD
  Company Number: None

PATIENT
  Age: 51 Year
  Sex: Female

DRUGS (5)
  1. CLOPIDOGREL [Suspect]
     Active Substance: CLOPIDOGREL BISULFATE
     Indication: Product used for unknown indication
     Dates: start: 20240925, end: 20240929
  2. IOMERON [Suspect]
     Active Substance: IOMEPROL
     Indication: Angiocardiogram
     Dates: start: 20240925, end: 20240925
  3. BISOPROLOL [Concomitant]
     Active Substance: BISOPROLOL
  4. ATORVASTATIN [Concomitant]
     Active Substance: ATORVASTATIN
  5. EZETIMIBE [Concomitant]
     Active Substance: EZETIMIBE

REACTIONS (2)
  - Toxic skin eruption [Recovered/Resolved]
  - Eosinophil count increased [Recovered/Resolved]

NARRATIVE: CASE EVENT DATE: 20240901
